FAERS Safety Report 8549983-9 (Version None)
Quarter: 2012Q3

REPORT INFORMATION
  Report Type: 
  Country: None (occurrence: None)
  Receive Date: 20120730
  Receipt Date: 20120723
  Transmission Date: 20120928
  Serious: Yes (Hospitalization)
  Sender: FDA-Public Use
  Company Number: DE-ABBOTT-12P-062-0958803-00

PATIENT
  Sex: Male

DRUGS (1)
  1. HUMIRA [Suspect]
     Indication: RHEUMATOID ARTHRITIS
     Route: 058
     Dates: start: 20101106, end: 20120708

REACTIONS (6)
  - DIARRHOEA [None]
  - HEPATIC ENZYME INCREASED [None]
  - PYREXIA [None]
  - THROMBOCYTOPENIA [None]
  - PANCREATITIS [None]
  - ORAL HERPES [None]
